FAERS Safety Report 26183631 (Version 1)
Quarter: 2025Q4

REPORT INFORMATION
  Report Type: Spontaneous
  Country: CN (occurrence: CN)
  Receive Date: 20251221
  Receipt Date: 20251221
  Transmission Date: 20260118
  Serious: Yes (Hospitalization)
  Sender: BEIGENE
  Company Number: CN-BEONEMEDICINES-BGN-2025-022601

PATIENT
  Age: 66 Year
  Sex: Male
  Weight: 60 kg

DRUGS (8)
  1. TISLELIZUMAB [Suspect]
     Active Substance: TISLELIZUMAB
     Indication: Oesophageal carcinoma
     Dosage: 200 MILLIGRAM
     Dates: start: 20250924, end: 20251027
  2. TISLELIZUMAB [Suspect]
     Active Substance: TISLELIZUMAB
     Dosage: 200 MILLIGRAM
     Route: 041
     Dates: start: 20250924, end: 20251027
  3. TISLELIZUMAB [Suspect]
     Active Substance: TISLELIZUMAB
     Dosage: 200 MILLIGRAM
     Route: 041
     Dates: start: 20250924, end: 20251027
  4. TISLELIZUMAB [Suspect]
     Active Substance: TISLELIZUMAB
     Dosage: 200 MILLIGRAM
     Dates: start: 20250924, end: 20251027
  5. PACLITAXEL [Suspect]
     Active Substance: PACLITAXEL
     Indication: Oesophageal carcinoma
     Dosage: 400 MILLIGRAM
     Route: 041
     Dates: start: 20250924, end: 20251027
  6. PACLITAXEL [Suspect]
     Active Substance: PACLITAXEL
     Dosage: 400 MILLIGRAM
     Dates: start: 20250924, end: 20251027
  7. CARBOPLATIN [Suspect]
     Active Substance: CARBOPLATIN
     Indication: Oesophageal carcinoma
     Dosage: 0.4 GRAM
     Route: 041
     Dates: start: 20250924, end: 20251027
  8. CARBOPLATIN [Suspect]
     Active Substance: CARBOPLATIN
     Dosage: 0.4 GRAM
     Dates: start: 20250924, end: 20251027

REACTIONS (1)
  - Renal failure [Recovering/Resolving]

NARRATIVE: CASE EVENT DATE: 20251027
